FAERS Safety Report 15164069 (Version 1)
Quarter: 2018Q3

REPORT INFORMATION
  Report Type: Spontaneous
  Country: IN (occurrence: IN)
  Receive Date: 20180719
  Receipt Date: 20180719
  Transmission Date: 20181010
  Serious: Yes (Hospitalization, Other)
  Sender: FDA-Public Use
  Company Number: IN-UNICHEM PHARMACEUTICALS (USA) INC-UCM201807-000163

PATIENT
  Age: 18 Year
  Sex: Female

DRUGS (5)
  1. SULBACTUM [Concomitant]
  2. AMLODIPINE [Suspect]
     Active Substance: AMLODIPINE BESYLATE
  3. SULBACTUM [Concomitant]
  4. CEFOPERAZONE [Concomitant]
     Active Substance: CEFOPERAZONE
  5. CEFOPERAZONE [Concomitant]
     Active Substance: CEFOPERAZONE

REACTIONS (8)
  - Intentional overdose [Recovered/Resolved]
  - Toxicity to various agents [Recovered/Resolved]
  - Tachypnoea [Recovered/Resolved]
  - Completed suicide [Recovered/Resolved]
  - Cardiogenic shock [Recovered/Resolved]
  - Sinus tachycardia [Recovered/Resolved]
  - Circulatory collapse [Recovered/Resolved]
  - Hypotension [Recovered/Resolved]
